FAERS Safety Report 20704299 (Version 2)
Quarter: 2024Q4

REPORT INFORMATION
  Report Type: Spontaneous
  Country: PT (occurrence: PT)
  Receive Date: 20220413
  Receipt Date: 20241225
  Transmission Date: 20250114
  Serious: Yes (Hospitalization, Other)
  Sender: MYLAN
  Company Number: PT-MYLANLABS-2022M1023616

PATIENT
  Age: 85 Year
  Sex: Female

DRUGS (2)
  1. ASPIRIN [Suspect]
     Active Substance: ASPIRIN
     Indication: Antiplatelet therapy
     Dosage: UNK
     Route: 065
  2. TICAGRELOR [Suspect]
     Active Substance: TICAGRELOR
     Indication: Antiplatelet therapy
     Dosage: UNK
     Route: 065

REACTIONS (6)
  - Intestinal obstruction [Unknown]
  - Volvulus [Unknown]
  - Hypovolaemic shock [Unknown]
  - Haemorrhoidal haemorrhage [Recovered/Resolved]
  - Metabolic acidosis [Unknown]
  - Syncope [Unknown]
